FAERS Safety Report 5830484-3 (Version None)
Quarter: 2008Q3

REPORT INFORMATION
  Report Type: 
  Country: None (occurrence: None)
  Receive Date: 20080801
  Receipt Date: 20070711
  Transmission Date: 20090109
  Serious: Yes (Hospitalization)
  Sender: FDA-Public Use
  Company Number: US-BRISTOL-MYERS SQUIBB COMPANY-13808555

PATIENT
  Age: 81 Year
  Sex: Female
  Weight: 63 kg

DRUGS (10)
  1. WARFARIN SODIUM [Suspect]
     Indication: ATRIAL FIBRILLATION
     Dosage: 5MG ALTERNATING WITH 7.5MG
     Route: 048
     Dates: start: 19820101
  2. LIPITOR [Concomitant]
  3. LISINOPRIL [Concomitant]
  4. TOPROL-XL [Concomitant]
  5. ASPIRIN [Concomitant]
     Route: 048
  6. CALCIUM [Concomitant]
  7. POTASSIUM CHLORIDE [Concomitant]
  8. COLCHICINE [Concomitant]
  9. PROBENECID [Concomitant]
  10. PREDNISONE [Concomitant]
     Indication: GOUT

REACTIONS (1)
  - INTERNATIONAL NORMALISED RATIO FLUCTUATION [None]
